FAERS Safety Report 10455356 (Version 5)
Quarter: 2016Q1

REPORT INFORMATION
  Report Type: Spontaneous
  Country: US (occurrence: US)
  Receive Date: 20140916
  Receipt Date: 20160107
  Transmission Date: 20160525
  Serious: Yes (Hospitalization, Congenital Anomaly, Other)
  Sender: FDA-Public Use
  Company Number: US-ELI_LILLY_AND_COMPANY-US201301009627

PATIENT

DRUGS (6)
  1. PRENAT CI [Concomitant]
     Route: 064
  2. TYLENOL [Concomitant]
     Active Substance: ACETAMINOPHEN
     Route: 064
  3. REGLAN [Concomitant]
     Active Substance: METOCLOPRAMIDE HYDROCHLORIDE
     Route: 064
  4. PROZAC [Suspect]
     Active Substance: FLUOXETINE HYDROCHLORIDE
     Indication: DEPRESSION
     Dosage: 1 DF, UNKNOWN
     Route: 064
     Dates: start: 199605, end: 199609
  5. CHROMAGEN                          /00555001/ [Concomitant]
     Route: 064
  6. SECONAL                            /00048601/ [Concomitant]
     Route: 064

REACTIONS (19)
  - Fallot^s tetralogy [Unknown]
  - Respiratory tract infection [Unknown]
  - Foetal exposure during pregnancy [Recovered/Resolved]
  - Dysphagia [Unknown]
  - Cardiopulmonary failure [Unknown]
  - Bundle branch block right [Unknown]
  - Attention deficit/hyperactivity disorder [Unknown]
  - Respiratory disorder neonatal [Recovered/Resolved]
  - Pulmonary artery dilatation [Unknown]
  - Tic [Unknown]
  - Umbilical cord around neck [Recovered/Resolved]
  - Ductus arteriosus premature closure [Unknown]
  - Congenital tricuspid valve incompetence [Unknown]
  - Blepharospasm [Unknown]
  - Angiopathy [Unknown]
  - Dilatation ventricular [Unknown]
  - Cardiomegaly [Unknown]
  - Right ventricular dysfunction [Unknown]
  - Congenital pulmonary valve disorder [Unknown]
